FAERS Safety Report 5950977-8 (Version None)
Quarter: 2008Q4

REPORT INFORMATION
  Report Type: 
  Country: None (occurrence: None)
  Receive Date: 20081110
  Receipt Date: 20081103
  Transmission Date: 20090506
  Serious: Yes (Death, Hospitalization)
  Sender: FDA-Public Use
  Company Number: 2008SP019926

PATIENT
  Age: 53 Year
  Sex: Female
  Weight: 65.9 kg

DRUGS (4)
  1. TEMODAR [Suspect]
     Indication: GLIOBLASTOMA MULTIFORME
     Dosage: PO, PO
     Route: 048
     Dates: start: 20080811, end: 20080903
  2. TEMODAR [Suspect]
     Indication: GLIOBLASTOMA MULTIFORME
     Dosage: PO, PO
     Route: 048
     Dates: start: 20071210
  3. DECADRON [Suspect]
     Indication: BRAIN OEDEMA
     Dosage: 4 MG; BID
     Dates: start: 20080731
  4. DEPAKOTE [Concomitant]

REACTIONS (20)
  - ASPIRATION [None]
  - CEREBRAL CYST [None]
  - CONFUSIONAL STATE [None]
  - CONVULSION [None]
  - COUGH [None]
  - DISEASE RECURRENCE [None]
  - ENCEPHALOMALACIA [None]
  - ENCEPHALOPATHY [None]
  - FALL [None]
  - HYPOTENSION [None]
  - HYPOXIA [None]
  - LETHARGY [None]
  - LOBAR PNEUMONIA [None]
  - MENTAL IMPAIRMENT [None]
  - OVERDOSE [None]
  - PLATELET COUNT DECREASED [None]
  - PNEUMOCYSTIS JIROVECI INFECTION [None]
  - SPINAL COMPRESSION FRACTURE [None]
  - URINARY INCONTINENCE [None]
  - WHITE BLOOD CELL COUNT DECREASED [None]
